FAERS Safety Report 9238332 (Version 4)
Quarter: 2013Q2

REPORT INFORMATION
  Report Type: Spontaneous
  Country: US (occurrence: US)
  Receive Date: 20130418
  Receipt Date: 20130513
  Transmission Date: 20140414
  Serious: Yes (Other)
  Sender: FDA-Public Use
  Company Number: US-JNJFOC-20130405384

PATIENT
  Age: 69 Year
  Sex: Female

DRUGS (3)
  1. REMICADE [Suspect]
     Indication: CROHN^S DISEASE
     Route: 042
     Dates: start: 20100514
  2. METHOTREXATE [Concomitant]
     Route: 030
     Dates: start: 20090724
  3. ENTOCORT [Concomitant]
     Route: 048
     Dates: start: 20070309

REACTIONS (1)
  - Malignant melanoma [Recovered/Resolved]
